FAERS Safety Report 5224409-1 (Version None)
Quarter: 2007Q1

REPORT INFORMATION
  Report Type: 
  Country: None (occurrence: None)
  Receive Date: 20070130
  Receipt Date: 20070122
  Transmission Date: 20070707
  Serious: Yes (Other)
  Sender: FDA-Public Use
  Company Number: GB-PFIZER INC-2006125561

PATIENT
  Age: 63 Year
  Sex: Female

DRUGS (8)
  1. ISTIN [Suspect]
     Indication: HYPERTENSION
     Route: 048
  2. OXAZEPAM [Concomitant]
     Route: 048
  3. SALBUTAMOL [Concomitant]
     Route: 055
  4. SIMVASTATIN [Concomitant]
     Route: 048
  5. MEBEVERINE [Concomitant]
     Route: 048
  6. LISINOPRIL [Concomitant]
     Route: 048
  7. FOSAMAX [Concomitant]
     Indication: OSTEOPOROSIS
  8. BETAMETHASONE [Concomitant]
     Indication: ASTHMA

REACTIONS (3)
  - DYSPHAGIA [None]
  - PHARYNGEAL ULCERATION [None]
  - THROAT IRRITATION [None]
